FAERS Safety Report 9187050 (Version 2)
Quarter: 2013Q2

REPORT INFORMATION
  Report Type: Spontaneous
  Country: IT (occurrence: IT)
  Receive Date: 20130325
  Receipt Date: 20130603
  Transmission Date: 20140414
  Serious: Yes (Hospitalization)
  Sender: FDA-Public Use
  Company Number: IT-JNJFOC-20130308023

PATIENT
  Age: 99 Year
  Sex: Male

DRUGS (6)
  1. RISPERDAL [Suspect]
     Indication: ABNORMAL BEHAVIOUR
     Dosage: EVENING DOSE WAS REDUCED FROM 0.75MG TO 0.50MG
     Route: 048
  2. RISPERDAL [Suspect]
     Indication: ABNORMAL BEHAVIOUR
     Dosage: 0.25MG IN THE MORNING AND 0.75MG IN THE EVENING
     Route: 048
     Dates: start: 20120101, end: 20130312
  3. LASIX [Concomitant]
     Indication: PRODUCT USED FOR UNKNOWN INDICATION
     Route: 065
  4. PANTORC [Concomitant]
     Indication: PRODUCT USED FOR UNKNOWN INDICATION
     Route: 065
  5. ISOTONIC SODIUM CHLORIDE [Concomitant]
     Indication: PRODUCT USED FOR UNKNOWN INDICATION
     Route: 065
  6. CLEXANE [Concomitant]
     Indication: PRODUCT USED FOR UNKNOWN INDICATION
     Route: 065

REACTIONS (2)
  - Sopor [Recovering/Resolving]
  - Overdose [Unknown]
